FAERS Safety Report 7417699-8 (Version None)
Quarter: 2011Q2

REPORT INFORMATION
  Report Type: 
  Country: None (occurrence: None)
  Receive Date: 20110415
  Receipt Date: 20110411
  Transmission Date: 20111010
  Serious: Yes (Death, Hospitalization, Other)
  Sender: FDA-Public Use
  Company Number: DE-PFIZER INC-2011079797

PATIENT
  Age: 83 Year
  Sex: Male

DRUGS (11)
  1. HALDOL [Suspect]
     Dosage: 5 MG, 1X/DAY
     Route: 042
     Dates: start: 20100215
  2. JONOSTERIL [Concomitant]
     Dosage: UNK
     Dates: start: 20100213
  3. FUROSEMID [Concomitant]
     Dosage: 40 MG, UNK
     Route: 048
     Dates: start: 20100213
  4. FENTANYL CITRATE [Suspect]
     Dosage: 50 UG/H
     Route: 042
     Dates: start: 20100212, end: 20100213
  5. FENTANYL CITRATE [Suspect]
     Dosage: 75 UG/H
     Route: 042
     Dates: start: 20100214
  6. CLEXANE [Concomitant]
     Dosage: 1 DF, 1X/DAY
     Route: 058
     Dates: start: 20100210
  7. TORSEMIDE [Concomitant]
     Indication: HYPERTENSION
     Dosage: 20 MG, UNK
     Dates: end: 20100212
  8. LYRICA [Suspect]
     Dosage: 25 MG, 1X/DAY
     Route: 048
     Dates: start: 20100111, end: 20100213
  9. FENTANYL CITRATE [Suspect]
     Dosage: 25 UG/H
     Route: 042
     Dates: end: 20100211
  10. LORZAAR [Concomitant]
     Indication: HYPERTENSION
     Dosage: 25 MG, UNK
  11. SEROQUEL [Suspect]
     Dosage: 100 MG, 1X/DAY
     Route: 048
     Dates: start: 20100210, end: 20100212

REACTIONS (8)
  - PNEUMONIA [None]
  - BRONCHIAL OBSTRUCTION [None]
  - CYANOSIS [None]
  - RHONCHI [None]
  - GENERAL PHYSICAL HEALTH DETERIORATION [None]
  - DEATH [None]
  - RESTLESSNESS [None]
  - BLOOD PRESSURE DECREASED [None]
